FAERS Safety Report 24760064 (Version 3)
Quarter: 2025Q2

REPORT INFORMATION
  Report Type: Spontaneous
  Country: US (occurrence: US)
  Receive Date: 20241220
  Receipt Date: 20250625
  Transmission Date: 20250717
  Serious: Yes (Hospitalization, Other)
  Sender: VERTEX
  Company Number: US-VERTEX PHARMACEUTICALS-2024-019405

PATIENT
  Sex: Female

DRUGS (2)
  1. TRIKAFTA [Suspect]
     Active Substance: ELEXACAFTOR\IVACAFTOR\TEZACAFTOR
     Indication: Cystic fibrosis
     Route: 048
  2. TRIKAFTA [Suspect]
     Active Substance: ELEXACAFTOR\IVACAFTOR\TEZACAFTOR
     Dosage: REDUCED (ONE YELLOW IN MORNING AND BLUE IN EVENING)
     Route: 048

REACTIONS (5)
  - Acute hepatic failure [Unknown]
  - Hospitalisation [Unknown]
  - Chest pain [Unknown]
  - Blood iron decreased [Unknown]
  - Menstruation irregular [Unknown]
